FAERS Safety Report 13965605 (Version 2)
Quarter: 2017Q3

REPORT INFORMATION
  Report Type: Spontaneous
  Country: BR (occurrence: BR)
  Receive Date: 20170913
  Receipt Date: 20170918
  Transmission Date: 20171128
  Serious: Yes (Life-Threatening, Other)
  Sender: FDA-Public Use
  Company Number: BR-JNJFOC-20170910409

PATIENT

DRUGS (4)
  1. INFLIXIMAB, RECOMBINANT [Suspect]
     Active Substance: INFLIXIMAB
     Indication: ACUTE GRAFT VERSUS HOST DISEASE
     Route: 042
  2. MYCOPHENOLATE MOFETIL. [Suspect]
     Active Substance: MYCOPHENOLATE MOFETIL
     Indication: PROPHYLAXIS AGAINST GRAFT VERSUS HOST DISEASE
     Route: 065
  3. METHYLPREDNISOLONE. [Suspect]
     Active Substance: METHYLPREDNISOLONE
     Indication: PROPHYLAXIS AGAINST GRAFT VERSUS HOST DISEASE
     Route: 065
  4. TACROLIMUS. [Suspect]
     Active Substance: TACROLIMUS
     Indication: ACUTE GRAFT VERSUS HOST DISEASE
     Route: 065

REACTIONS (15)
  - Encephalitis [Unknown]
  - Subcutaneous abscess [Unknown]
  - Product use in unapproved indication [Unknown]
  - Sinusitis [Unknown]
  - Cystitis haemorrhagic [Unknown]
  - Pneumocystis jirovecii infection [Unknown]
  - Cytomegalovirus infection [Unknown]
  - Oral candidiasis [Unknown]
  - Skin infection [Unknown]
  - Fungal infection [Unknown]
  - Pneumonia [Unknown]
  - Bacterial infection [Unknown]
  - Off label use [Unknown]
  - Haemolytic uraemic syndrome [Unknown]
  - Febrile neutropenia [Unknown]
